FAERS Safety Report 6223247-0 (Version None)
Quarter: 2009Q2

REPORT INFORMATION
  Report Type: 
  Country: None (occurrence: None)
  Receive Date: 20090611
  Receipt Date: 20090604
  Transmission Date: 20091009
  Serious: Yes (Hospitalization)
  Sender: FDA-Public Use
  Company Number: PHHO2009GB07010

PATIENT
  Sex: Male

DRUGS (2)
  1. TASIGNA [Suspect]
     Indication: CHRONIC MYELOID LEUKAEMIA
     Dosage: 400 MG, BID
     Route: 048
     Dates: start: 20090519
  2. STI571/CGP57148B T35717+CAPS [Suspect]
     Indication: CHRONIC MYELOID LEUKAEMIA
     Dosage: 300 MG, QD
     Route: 048
     Dates: start: 20080410, end: 20090517

REACTIONS (7)
  - ANAEMIA [None]
  - ANAPHYLACTIC REACTION [None]
  - CHEST X-RAY ABNORMAL [None]
  - DYSPNOEA [None]
  - LIP SWELLING [None]
  - PNEUMONIA [None]
  - SPEECH DISORDER [None]
